FAERS Safety Report 24890650 (Version 1)
Quarter: 2025Q1

REPORT INFORMATION
  Report Type: Spontaneous
  Country: GB (occurrence: GB)
  Receive Date: 20250127
  Receipt Date: 20250127
  Transmission Date: 20250409
  Serious: Yes (Other)
  Sender: ELI LILLY AND COMPANY
  Company Number: GB-MHRA-EMIS-768-6e43357b-f6b6-4cf5-8f96-39eff14bc6c6

PATIENT
  Age: 31 Year
  Sex: Female
  Weight: 101 kg

DRUGS (2)
  1. MOUNJARO [Suspect]
     Active Substance: TIRZEPATIDE
     Indication: Product used for unknown indication
     Dosage: 7.5 MG, WEEKLY (1/W)
     Route: 058
     Dates: start: 20241007, end: 20241211
  2. OTOMIZE EAR SPRAY [Concomitant]
     Indication: Ear disorder
     Dosage: 5 ML, EVERY 8 HRS
     Route: 001
     Dates: start: 20241212

REACTIONS (2)
  - Blood triglycerides increased [Recovering/Resolving]
  - Vomiting [Recovering/Resolving]

NARRATIVE: CASE EVENT DATE: 20241211
